FAERS Safety Report 6873127-2 (Version None)
Quarter: 2010Q3

REPORT INFORMATION
  Report Type: 
  Country: None (occurrence: None)
  Receive Date: 20100723
  Receipt Date: 20090410
  Transmission Date: 20110219
  Serious: No
  Sender: FDA-Public Use
  Company Number: US-PFIZER INC-2008099564

PATIENT
  Sex: Male
  Weight: 95.5 kg

DRUGS (1)
  1. CHANTIX [Suspect]
     Dates: start: 20080801, end: 20080801

REACTIONS (4)
  - CONSTIPATION [None]
  - INSOMNIA [None]
  - TINNITUS [None]
  - TOOTH INFECTION [None]
